FAERS Safety Report 6522080-X (Version None)
Quarter: 2009Q4

REPORT INFORMATION
  Report Type: 
  Country: None (occurrence: None)
  Receive Date: 20091230
  Receipt Date: 20091223
  Transmission Date: 20100525
  Serious: Yes (Other)
  Sender: FDA-Public Use
  Company Number: PHHO2009IT14426

PATIENT
  Sex: Female
  Weight: 75 kg

DRUGS (6)
  1. CERTICAN [Suspect]
     Indication: RENAL TRANSPLANT
     Dosage: 2.25MG/DAY
     Route: 048
     Dates: start: 20090910, end: 20091117
  2. CYCLOSPORINE [Suspect]
     Indication: RENAL TRANSPLANT
     Dosage: 50 MG, BID
     Route: 048
     Dates: start: 20090910
  3. CYCLOSPORINE [Suspect]
     Dosage: 700-800 NG/ML
     Route: 048
  4. DELTACORTENE [Suspect]
     Indication: RENAL TRANSPLANT
     Dosage: 5MG / DAY
     Route: 048
     Dates: start: 20090913
  5. DELTACORTENE [Suspect]
     Dosage: 10MG / DAY
     Route: 048
  6. BACTRIM DS [Concomitant]

REACTIONS (2)
  - ASTHENIA [None]
  - PANCYTOPENIA [None]
